FAERS Safety Report 7659387-9 (Version None)
Quarter: 2011Q3

REPORT INFORMATION
  Report Type: 
  Country: None (occurrence: None)
  Receive Date: 20110802
  Receipt Date: 20110718
  Transmission Date: 20111222
  Serious: No
  Sender: FDA-Public Use
  Company Number: 2011SP033608

PATIENT
  Age: 86 Year
  Sex: Female
  Weight: 45.3597 kg

DRUGS (10)
  1. CLARITIN [Suspect]
     Indication: OROPHARYNGEAL PAIN
     Dosage: 5 MG; PO
     Route: 048
     Dates: start: 20110717
  2. CLARITIN [Suspect]
     Indication: RHINORRHOEA
     Dosage: 5 MG; PO
     Route: 048
     Dates: start: 20110717
  3. CLARITIN [Suspect]
     Indication: LACRIMATION INCREASED
     Dosage: 5 MG; PO
     Route: 048
     Dates: start: 20110717
  4. CLARITIN [Suspect]
     Indication: SEASONAL ALLERGY
     Dosage: 5 MG; PO
     Route: 048
     Dates: start: 20110717
  5. CLARITIN [Suspect]
     Indication: EYE PRURITUS
     Dosage: 5 MG; PO
     Route: 048
     Dates: start: 20110717
  6. CLARITIN [Suspect]
     Indication: OROPHARYNGEAL PAIN
     Dosage: 5 MG; PO
     Route: 048
     Dates: end: 20110720
  7. CLARITIN [Suspect]
     Indication: RHINORRHOEA
     Dosage: 5 MG; PO
     Route: 048
     Dates: end: 20110720
  8. CLARITIN [Suspect]
     Indication: LACRIMATION INCREASED
     Dosage: 5 MG; PO
     Route: 048
     Dates: end: 20110720
  9. CLARITIN [Suspect]
     Indication: SEASONAL ALLERGY
     Dosage: 5 MG; PO
     Route: 048
     Dates: end: 20110720
  10. CLARITIN [Suspect]
     Indication: EYE PRURITUS
     Dosage: 5 MG; PO
     Route: 048
     Dates: end: 20110720

REACTIONS (6)
  - CHEST PAIN [None]
  - EAR PAIN [None]
  - HEART RATE INCREASED [None]
  - PAIN IN EXTREMITY [None]
  - TINNITUS [None]
  - CONDITION AGGRAVATED [None]
